FAERS Safety Report 22172693 (Version 1)
Quarter: 2023Q2

REPORT INFORMATION
  Report Type: Report from Study
  Country: US (occurrence: US)
  Receive Date: 20230404
  Receipt Date: 20230404
  Transmission Date: 20230721
  Serious: Yes (Hospitalization)
  Sender: FDA-Public Use
  Company Number: US-GILEAD-2023-0621738

PATIENT
  Age: 8 Year
  Sex: Female

DRUGS (9)
  1. AZTREONAM LYSINE [Suspect]
     Active Substance: AZTREONAM LYSINE
     Indication: Cystic fibrosis
     Dosage: 75 MG, TID,(1 VIAL) VIA ALTERA NEBULIZER 3X DAILY, AT LEAST 4 HOURS APART, 28 DAYS ON AND 28 DAYS
     Route: 055
     Dates: start: 201905
  2. PULMOZYME [Concomitant]
     Active Substance: DORNASE ALFA
     Dosage: PULMOZYME 1MG/ML 2.5ML
  3. URSODIOL [Concomitant]
     Active Substance: URSODIOL
  4. AZITHROMYCIN [Concomitant]
     Active Substance: AZITHROMYCIN
  5. CHOLECALCIFEROL [Concomitant]
     Active Substance: CHOLECALCIFEROL
  6. MINERALS\VITAMINS [Concomitant]
     Active Substance: MINERALS\VITAMINS
  7. PREVACID [Concomitant]
     Active Substance: LANSOPRAZOLE
  8. CREON [Concomitant]
     Active Substance: PANCRELIPASE AMYLASE\PANCRELIPASE LIPASE\PANCRELIPASE PROTEASE
  9. ALBUTEROL SULFATE [Concomitant]
     Active Substance: ALBUTEROL SULFATE

REACTIONS (2)
  - Infection [Unknown]
  - Constipation [Unknown]

NARRATIVE: CASE EVENT DATE: 20230323
